FAERS Safety Report 5355305-7 (Version None)
Quarter: 2007Q2

REPORT INFORMATION
  Report Type: 
  Country: None (occurrence: None)
  Receive Date: 20070601
  Receipt Date: 20070305
  Transmission Date: 20071010
  Serious: Yes (Hospitalization)
  Sender: FDA-Public Use
  Company Number: S07-USA-00183-01

PATIENT
  Age: 58 Year
  Sex: Male

DRUGS (5)
  1. CAMPRAL [Suspect]
     Indication: ALCOHOLISM
     Dosage: 666 MG TID; PO
     Route: 048
     Dates: start: 20060101
  2. FASTE PATCHE (A COMBINATION OF HERBAL INGREDIENTS) [Suspect]
     Indication: TENDONITIS
     Dates: start: 20070224, end: 20070225
  3. COZAAR [Concomitant]
  4. PEPCID [Concomitant]
  5. ASPIRIN [Concomitant]

REACTIONS (2)
  - CONVULSION [None]
  - TENDONITIS [None]
